FAERS Safety Report 4464960-5 (Version None)
Quarter: 2004Q4

REPORT INFORMATION
  Report Type: 
  Country: None (occurrence: None)
  Receive Date: 20041004
  Receipt Date: 20040409
  Transmission Date: 20050328
  Serious: No
  Sender: FDA-Public Use
  Company Number: 368195

PATIENT
  Age: 61 Year
  Sex: Male
  Weight: 102.5 kg

DRUGS (1)
  1. COREG [Suspect]
     Indication: CARDIAC FAILURE
     Dosage: 3.125MG TWICE PER DAY
     Route: 048
     Dates: start: 20040212, end: 20040216

REACTIONS (3)
  - OROPHARYNGEAL SWELLING [None]
  - RASH GENERALISED [None]
  - SWOLLEN TONGUE [None]
